FAERS Safety Report 16154438 (Version 1)
Quarter: 2019Q2

REPORT INFORMATION
  Report Type: Spontaneous
  Country: US (occurrence: US)
  Receive Date: 20190403
  Receipt Date: 20190403
  Transmission Date: 20190711
  Serious: Yes (Death)
  Sender: FDA-Public Use
  Company Number: US-CELGENEUS-USA-20190400725

PATIENT
  Age: 68 Year
  Sex: Female
  Weight: 107.14 kg

DRUGS (2)
  1. PROCHLORPERAZINE. [Concomitant]
     Active Substance: PROCHLORPERAZINE
     Indication: PRODUCT USED FOR UNKNOWN INDICATION
     Route: 065
  2. REVLIMID [Suspect]
     Active Substance: LENALIDOMIDE
     Indication: B-CELL LYMPHOMA STAGE II
     Dosage: 20 MILLIGRAM
     Route: 048
     Dates: start: 20190309, end: 20190401

REACTIONS (1)
  - Death [Fatal]

NARRATIVE: CASE EVENT DATE: 20190401
